FAERS Safety Report 12615896 (Version 1)
Quarter: 2016Q3

REPORT INFORMATION
  Report Type: Spontaneous
  Country: AU (occurrence: AU)
  Receive Date: 20160802
  Receipt Date: 20160802
  Transmission Date: 20161109
  Serious: Yes (Hospitalization)
  Sender: FDA-Public Use
  Company Number: AU-IMPAX LABORATORIES, INC-2016-IPXL-00806

PATIENT
  Age: 26 Year
  Sex: Male

DRUGS (5)
  1. BACLOFEN. [Suspect]
     Active Substance: BACLOFEN
     Indication: ALCOHOL USE
     Dosage: 25 MG, 3 /DAY
     Route: 065
     Dates: start: 201403
  2. BACLOFEN. [Suspect]
     Active Substance: BACLOFEN
     Dosage: 200 MG, DAILY
     Route: 065
  3. BACLOFEN. [Suspect]
     Active Substance: BACLOFEN
     Dosage: 500 MG, DAILY
     Route: 065
     Dates: start: 201408
  4. BACLOFEN. [Suspect]
     Active Substance: BACLOFEN
     Dosage: 50?75 MG, UNK
     Route: 065
  5. BACLOFEN. [Suspect]
     Active Substance: BACLOFEN
     Dosage: 30 MG, DAILY
     Route: 065

REACTIONS (7)
  - Insomnia [Recovering/Resolving]
  - Drug withdrawal syndrome [Recovering/Resolving]
  - Hyperhidrosis [Recovering/Resolving]
  - Tremor [Recovering/Resolving]
  - Paraesthesia [Recovering/Resolving]
  - Off label use [Recovering/Resolving]
  - Formication [Recovering/Resolving]
